FAERS Safety Report 19679003 (Version 4)
Quarter: 2021Q4

REPORT INFORMATION
  Report Type: Report from Study
  Country: None (occurrence: CH)
  Receive Date: 20210810
  Receipt Date: 20211010
  Transmission Date: 20220303
  Serious: Yes (Hospitalization)
  Sender: FDA-Public Use
  Company Number: CH-ABBVIE-21K-151-4027754-00

PATIENT
  Age: 69 Year
  Sex: Male

DRUGS (5)
  1. CARBIDOPA\LEVODOPA [Suspect]
     Active Substance: CARBIDOPA\LEVODOPA
     Indication: Parkinson^s disease
     Route: 050
     Dates: start: 20201027
  2. CARBIDOPA\LEVODOPA [Suspect]
     Active Substance: CARBIDOPA\LEVODOPA
     Dosage: MD: 2.0 ML, CRD: 2.4 ML/H, CRN: 1.4 ML/H, ED: 1.0 ML, 24H THERAPY
     Route: 050
     Dates: start: 20201227, end: 20210225
  3. CARBIDOPA\LEVODOPA [Suspect]
     Active Substance: CARBIDOPA\LEVODOPA
     Dosage: MD: 2.0 ML, CRD: 2.2 ML/H, CRN: 1.4 ML/H, ED: 1.0 ML, 24H THERAPY
     Route: 050
     Dates: start: 20210225, end: 20210427
  4. CARBIDOPA\LEVODOPA [Suspect]
     Active Substance: CARBIDOPA\LEVODOPA
     Dosage: MD: 2.0 ML, CRD: 2.0 ML/H, CRN: 1.4 ML/H, ED: 1.0 ML, 24H THERAPY
     Route: 050
     Dates: start: 20210427, end: 20210505
  5. CARBIDOPA\LEVODOPA [Suspect]
     Active Substance: CARBIDOPA\LEVODOPA
     Dosage: MD: 2.0 ML, CRD: 1.9 ML/H, CRN: 1.4 ML/H, ED: 0.7 ML
     Route: 050
     Dates: start: 20210505

REACTIONS (9)
  - Tuberculosis [Not Recovered/Not Resolved]
  - Pneumonia [Not Recovered/Not Resolved]
  - Unintentional medical device removal [Unknown]
  - Stoma site discharge [Unknown]
  - Stoma site haemorrhage [Recovered/Resolved]
  - Stoma site hypergranulation [Not Recovered/Not Resolved]
  - Erythema [Unknown]
  - Screaming [Unknown]
  - Stoma site odour [Unknown]

NARRATIVE: CASE EVENT DATE: 20210725
